FAERS Safety Report 8537058 (Version 3)
Quarter: 2013Q1

REPORT INFORMATION
  Report Type: Spontaneous
  Country: US (occurrence: None)
  Receive Date: 20120420
  Receipt Date: 20121119
  Transmission Date: 20140127
  Serious: Yes (Other)
  Sender: FDA-Public Use
  Company Number: ACO_30024_2012

PATIENT
  Age: 35 Year
  Sex: Female
  Weight: 62 kg

DRUGS (11)
  1. AMPYRA [Suspect]
     Indication: MULTIPLE SCLEROSIS
     Dosage: QHS?
     Route: 048
     Dates: start: 20111004
  2. REBIF (INTERFERON BETA-1A) [Concomitant]
     Route: 058
     Dates: start: 20110603
  3. CYMBALTA (DULOXETINE HYDROCHLORIDE) [Concomitant]
  4. FISH OIL (FISH OIL) [Concomitant]
  5. FLECTOR / 00372302/ (DICLOFENAC SODIUM) [Concomitant]
  6. GABAPENTIN (GABAPENTIN) [Concomitant]
  7. NAPROXEN (NAPROXEN) [Concomitant]
  8. NUCYNTA (TAPENTADOL HYDROCHLORIDE) [Concomitant]
     Indication: MULTIPLE SCLEROSIS
     Route: 058
     Dates: start: 20110603
  9. TRAZODONE (TRAZODONE) [Concomitant]
  10. TYLENOL /00020001/ )PARACETAMOL) [Concomitant]
  11. ERGOCALCIFEROL [Concomitant]

REACTIONS (9)
  - Nephrolithiasis [None]
  - Inappropriate schedule of drug administration [None]
  - Groin pain [None]
  - Dyskinesia [None]
  - Sinus disorder [None]
  - Lower respiratory tract infection [None]
  - Increased tendency to bruise [None]
  - Injection site bruising [None]
  - Injection site pain [None]
